FAERS Safety Report 5933078-4 (Version None)
Quarter: 2008Q4

REPORT INFORMATION
  Report Type: 
  Country: None (occurrence: None)
  Receive Date: 20081023
  Receipt Date: 20060606
  Transmission Date: 20090506
  Serious: Yes (Other)
  Sender: FDA-Public Use
  Company Number: 2006AL002165

PATIENT
  Sex: Male

DRUGS (5)
  1. METFORMIN HYDROCHLORIDE [Suspect]
     Indication: TYPE 2 DIABETES MELLITUS
     Dosage: 1000 MG;QD;PO
     Route: 048
     Dates: start: 20060314, end: 20060505
  2. ACETAMINOPHEN W/ CODEINE [Concomitant]
  3. DICLOFENAC [Concomitant]
  4. SILDENAFIL CITRATE [Concomitant]
  5. SIMVASTATIN [Concomitant]

REACTIONS (8)
  - ABDOMINAL DISCOMFORT [None]
  - ABDOMINAL DISTENSION [None]
  - ARTHRALGIA [None]
  - BLOOD GLUCOSE INCREASED [None]
  - DYSGEUSIA [None]
  - HYPOAESTHESIA [None]
  - HYPOGLYCAEMIA [None]
  - MUSCLE SPASMS [None]
